FAERS Safety Report 5392797-1 (Version None)
Quarter: 2007Q3

REPORT INFORMATION
  Report Type: 
  Country: None (occurrence: None)
  Receive Date: 20070720
  Receipt Date: 20070710
  Transmission Date: 20080115
  Serious: Yes (Hospitalization, Disabling)
  Sender: FDA-Public Use
  Company Number: JP-PFIZER INC-2007053418

PATIENT
  Sex: Female
  Weight: 40 kg

DRUGS (6)
  1. SOLU-MEDROL [Suspect]
     Indication: ANTI-NEUTROPHIL CYTOPLASMIC ANTIBODY POSITIVE VASCULITIS
     Dosage: DAILY DOSE:500MG
     Route: 042
     Dates: start: 20050113, end: 20050116
  2. PREDONINE [Suspect]
     Indication: ANTI-NEUTROPHIL CYTOPLASMIC ANTIBODY POSITIVE VASCULITIS
     Dosage: DAILY DOSE:40MG
     Route: 048
     Dates: start: 20050117, end: 20050121
  3. PREDONINE [Suspect]
     Dosage: DAILY DOSE:35MG
     Route: 048
     Dates: start: 20050122, end: 20050128
  4. PREDONINE [Suspect]
     Dosage: DAILY DOSE:30MG
     Route: 048
     Dates: start: 20050129, end: 20050303
  5. PREDONINE [Suspect]
     Route: 048
     Dates: start: 20050304
  6. PREDONINE [Suspect]
     Dosage: DAILY DOSE:20MG
     Route: 048
     Dates: end: 20050318

REACTIONS (1)
  - BRONCHOPULMONARY ASPERGILLOSIS [None]
